FAERS Safety Report 4824187-1 (Version None)
Quarter: 2005Q4

REPORT INFORMATION
  Report Type: 
  Country: None (occurrence: None)
  Receive Date: 20051108
  Receipt Date: 20051026
  Transmission Date: 20060501
  Serious: No
  Sender: FDA-Public Use
  Company Number: B0345212A

PATIENT
  Age: 40 Year
  Sex: Male

DRUGS (3)
  1. RETROVIR [Suspect]
     Dates: start: 20020901
  2. EPIVIR [Suspect]
     Dates: start: 20020901
  3. ZIAGEN [Suspect]
     Dates: start: 20020901

REACTIONS (3)
  - PATHOGEN RESISTANCE [None]
  - TUBERCULOID LEPROSY [None]
  - VASCULITIS [None]
